FAERS Safety Report 4559341-X (Version None)
Quarter: 2005Q1

REPORT INFORMATION
  Report Type: 
  Country: None (occurrence: None)
  Receive Date: 20050124
  Receipt Date: 20050113
  Transmission Date: 20050727
  Serious: Yes (Other)
  Sender: FDA-Public Use
  Company Number: US-JNJFOC-20050104352

PATIENT
  Age: 45 Year
  Sex: Male

DRUGS (3)
  1. MOTRIN [Suspect]
  2. MOTRIN [Suspect]
     Indication: BACK PAIN
  3. VIOXX [Concomitant]

REACTIONS (2)
  - HEPATOCELLULAR DAMAGE [None]
  - LIVER FUNCTION TEST ABNORMAL [None]
